FAERS Safety Report 5176352-4 (Version None)
Quarter: 2006Q4

REPORT INFORMATION
  Report Type: 
  Country: None (occurrence: None)
  Receive Date: 20061207
  Receipt Date: 20061124
  Transmission Date: 20070319
  Serious: Yes (Hospitalization)
  Sender: FDA-Public Use
  Company Number: 6027670

PATIENT
  Age: 82 Year
  Sex: Male

DRUGS (6)
  1. DETENSIEL (10 MG TABLET) (BISOPROLOL FUMARATE) [Suspect]
     Indication: DRUG USE FOR UNKNOWN INDICATION
     Dosage: 0,5 DOSAGE, ORAL
     Route: 048
  2. KENZEN (TABLET) (CANDESARTAN CILEXETIL) [Suspect]
     Indication: DRUG USE FOR UNKNOWN INDICATION
     Dosage: 1 DOSAGE; ORAL
     Route: 048
     Dates: start: 20060707
  3. PLAVIX [Concomitant]
  4. CORDARONE [Concomitant]
  5. FONZYLANE (BUFLOMEDIL HYDROCHLORIDE [Concomitant]
  6. PRAVASTATIN [Concomitant]

REACTIONS (10)
  - ACUTE PULMONARY OEDEMA [None]
  - ANAEMIA [None]
  - FALL [None]
  - HYPERKALAEMIA [None]
  - MALAISE [None]
  - ORTHOSTATIC HYPOTENSION [None]
  - PALLOR [None]
  - RENAL FAILURE [None]
  - SYNCOPE [None]
  - VOMITING [None]
